FAERS Safety Report 4619374-1 (Version None)
Quarter: 2005Q2

REPORT INFORMATION
  Report Type: 
  Country: None (occurrence: None)
  Receive Date: 20050321
  Receipt Date: 20040329
  Transmission Date: 20051028
  Serious: Yes (Other)
  Sender: FDA-Public Use
  Company Number: 2004-03-2026

PATIENT
  Age: 47 Year
  Sex: Female
  Weight: 61.2356 kg

DRUGS (3)
  1. PEG-INTRON (PEGINTERFERON ALFA-2B) INJECTABLE POWDER [Suspect]
     Indication: HEPATITIS C
     Dosage: 80 MCG QW, SUBCUTANEOUS
     Route: 058
     Dates: start: 20040104, end: 20040320
  2. REBETOL [Suspect]
     Indication: HEPATITIS C
     Dosage: 800 MG BID, ORAL
     Route: 048
     Dates: start: 20040104, end: 20040320
  3. CIPRO [Suspect]

REACTIONS (2)
  - MYOSITIS [None]
  - STEVENS-JOHNSON SYNDROME [None]
